FAERS Safety Report 9817747 (Version 1)
Quarter: 2014Q1

REPORT INFORMATION
  Report Type: Report from Study
  Country: US (occurrence: US)
  Receive Date: 20140115
  Receipt Date: 20140115
  Transmission Date: 20141002
  Serious: Yes (Hospitalization, Other)
  Sender: FDA-Public Use
  Company Number: US-ROCHE-1330462

PATIENT
  Age: 55 Year
  Sex: Female

DRUGS (23)
  1. CELLCEPT [Suspect]
     Indication: NEUROMYELITIS OPTICA
     Dosage: 2 TABS TWO TIMES PER DAY
     Route: 048
  2. RITUXAN [Suspect]
     Indication: NEUROMYELITIS OPTICA
     Route: 065
     Dates: start: 20080312
  3. RITUXAN [Suspect]
     Route: 065
     Dates: start: 20081211
  4. RITUXAN [Suspect]
     Route: 065
     Dates: start: 20100331
  5. GAMUNEX [Concomitant]
     Dosage: 1 INFUSION EVERY OTHER DAY 3 TIMES THEN 1 INFUSION
     Route: 042
  6. ERGOCALCIFEROL [Concomitant]
     Dosage: 1 CAPSULE EVERY 7 DAYS
     Route: 048
  7. LEVOTHYROXINE [Concomitant]
     Dosage: 1 TABLET DAILY BEFORE BREAKFAST
     Route: 048
  8. PREDNISONE [Concomitant]
     Route: 048
  9. PREDNISONE [Concomitant]
     Route: 048
  10. PREDNISONE [Concomitant]
     Route: 048
  11. PREDNISONE [Concomitant]
     Route: 048
  12. NORVASC [Concomitant]
     Dosage: 1 TABLET DAILY
     Route: 048
  13. ANALPRAM-HC [Concomitant]
     Dosage: 4 TIMES PER DAY
     Route: 054
  14. NEXIUM [Concomitant]
     Dosage: 1 CAPSULE TWICE A DAY.
     Route: 048
  15. EFFEXOR XR [Concomitant]
     Dosage: 1 CAPSULE DAILY WITH BREAKFAST
     Route: 048
  16. K-TAB [Concomitant]
     Dosage: 2 TABS DAILY
     Route: 048
  17. CARBAMAZEPINE [Concomitant]
     Route: 048
  18. VALTREX [Concomitant]
     Route: 048
  19. AMITRIPTYLINE [Concomitant]
     Dosage: 2 TABLETS EVERY NIGHT AT BEDTIME
     Route: 048
  20. EVOXAC [Concomitant]
     Route: 048
  21. MIRALAX [Concomitant]
     Route: 048
  22. BENADRYL ORAL (UNITED STATES) [Concomitant]
     Route: 065
  23. TYLENOL [Concomitant]
     Route: 065

REACTIONS (17)
  - Dysarthria [Unknown]
  - Neuromyelitis optica [Unknown]
  - Blindness unilateral [Unknown]
  - Constipation [Unknown]
  - Renal cyst [Unknown]
  - Flatulence [Unknown]
  - Eructation [Unknown]
  - Fatigue [Unknown]
  - Viral test positive [Unknown]
  - Speech disorder [Unknown]
  - Hypoaesthesia [Unknown]
  - Visual acuity reduced [Unknown]
  - Neurological examination abnormal [Unknown]
  - Anaemia [Unknown]
  - Helicobacter infection [Unknown]
  - Urinary tract infection [Unknown]
  - Dysphagia [Unknown]
